FAERS Safety Report 5811577-3 (Version None)
Quarter: 2008Q3

REPORT INFORMATION
  Report Type: 
  Country: None (occurrence: None)
  Receive Date: 20080716
  Receipt Date: 20080704
  Transmission Date: 20090109
  Serious: Yes (Other)
  Sender: FDA-Public Use
  Company Number: JP-ASTRAZENECA-2008AP04903

PATIENT
  Age: 23529 Day
  Sex: Male

DRUGS (4)
  1. SEROQUEL [Suspect]
     Indication: SCHIZOPHRENIA
     Route: 048
     Dates: start: 20080512, end: 20080531
  2. SEROQUEL [Suspect]
     Route: 048
     Dates: start: 20080601, end: 20080628
  3. AKINETON [Concomitant]
     Route: 048
     Dates: start: 20080512
  4. INHIROCK [Concomitant]
     Route: 048
     Dates: start: 20080103, end: 20080630

REACTIONS (1)
  - ORTHOSTATIC HYPOTENSION [None]
